FAERS Safety Report 11770813 (Version 1)
Quarter: 2015Q4

REPORT INFORMATION
  Report Type: Spontaneous
  Country: VE (occurrence: VE)
  Receive Date: 20151123
  Receipt Date: 20151123
  Transmission Date: 20160304
  Serious: Yes (Other)
  Sender: FDA-Public Use
  Company Number: PHHY2015VE153185

PATIENT
  Sex: Female

DRUGS (6)
  1. TRILEPTAL [Suspect]
     Active Substance: OXCARBAZEPINE
     Indication: SEIZURE
     Dosage: 300 MG, Q12H
     Route: 048
     Dates: start: 20151009
  2. EUTHYROX [Concomitant]
     Active Substance: LEVOTHYROXINE SODIUM
     Indication: HYPOTHYROIDISM
     Dosage: UNK
     Route: 065
     Dates: start: 2012
  3. TOPIRAMATO [Suspect]
     Active Substance: TOPIRAMATE
     Indication: SEIZURE
     Dosage: 100 MG, Q12H
     Route: 048
     Dates: start: 2011
  4. TOPICTAL [Concomitant]
     Indication: SEIZURE
     Dosage: UNK
     Route: 065
     Dates: start: 2013
  5. VALPRON [Concomitant]
     Indication: SEIZURE
     Route: 065
  6. FRISIUM [Concomitant]
     Active Substance: CLOBAZAM
     Indication: SEIZURE
     Route: 065

REACTIONS (2)
  - Seizure [Unknown]
  - Hemiplegia [Unknown]
